FAERS Safety Report 7082761-9 (Version None)
Quarter: 2010Q4

REPORT INFORMATION
  Report Type: 
  Country: None (occurrence: None)
  Receive Date: 20101104
  Receipt Date: 20101102
  Transmission Date: 20110411
  Serious: Yes (Hospitalization, Other)
  Sender: FDA-Public Use
  Company Number: CA-BRISTOL-MYERS SQUIBB COMPANY-14791453

PATIENT
  Age: 71 Year
  Sex: Female

DRUGS (19)
  1. ORENCIA [Suspect]
     Indication: RHEUMATOID ARTHRITIS
     Dosage: 11AU,13NV,8JAN,5FE,09MAR,02APR,30APR,30APR,26MA,24JUN,24JUL,21AU,21SEP,14OC8,4MAY10,8JUN,5AU INF:23
     Route: 042
     Dates: start: 20080616
  2. PREDNISONE [Suspect]
  3. VITAMIN B-12 [Concomitant]
  4. FLEXERIL [Concomitant]
  5. ATASOL [Concomitant]
  6. CALCIUM [Concomitant]
  7. ARAVA [Concomitant]
  8. SENOKOT [Concomitant]
  9. COLACE [Concomitant]
  10. CODEINE CONTIN [Concomitant]
  11. LIPITOR [Concomitant]
  12. SYNTHROID [Concomitant]
  13. ACETAMINOPHEN [Concomitant]
  14. EMPRACET [Concomitant]
  15. CELEBREX [Concomitant]
  16. LASIX [Concomitant]
  17. ASPIRIN [Concomitant]
  18. METOPROLOL [Concomitant]
  19. XANAX [Concomitant]
     Dosage: AT BEDTIME.

REACTIONS (17)
  - ABDOMINAL PAIN [None]
  - ANGIOPATHY [None]
  - ARTERIAL INSUFFICIENCY [None]
  - ASTHENIA [None]
  - CONFUSIONAL STATE [None]
  - CYSTITIS [None]
  - DYSPNOEA [None]
  - DYSSTASIA [None]
  - EMPHYSEMA [None]
  - EXTREMITY NECROSIS [None]
  - MUSCULOSKELETAL STIFFNESS [None]
  - PALLOR [None]
  - SKIN ULCER [None]
  - URINARY BLADDER HAEMORRHAGE [None]
  - VENOUS INSUFFICIENCY [None]
  - VENOUS OCCLUSION [None]
  - VENOUS STENOSIS [None]
